FAERS Safety Report 17661226 (Version 1)
Quarter: 2020Q2

REPORT INFORMATION
  Report Type: Spontaneous
  Country: US (occurrence: US)
  Receive Date: 20200412
  Receipt Date: 20200412
  Transmission Date: 20200713
  Serious: No
  Sender: FDA-Public Use
  Company Number: None

PATIENT
  Age: 67 Year
  Sex: Female
  Weight: 65.7 kg

DRUGS (3)
  1. CPAP [Concomitant]
     Active Substance: DEVICE
  2. MONTELUKAST [Suspect]
     Active Substance: MONTELUKAST SODIUM
     Indication: HYPERSENSITIVITY
     Dosage: ?          QUANTITY:90 TABLET(S);?
     Route: 048
     Dates: start: 20200404, end: 20200411
  3. MONTELUKAST [Suspect]
     Active Substance: MONTELUKAST SODIUM
     Indication: ASTHMA
     Dosage: ?          QUANTITY:90 TABLET(S);?
     Route: 048
     Dates: start: 20200404, end: 20200411

REACTIONS (8)
  - Dysarthria [None]
  - Dyspnoea [None]
  - Fatigue [None]
  - Disturbance in attention [None]
  - Palpitations [None]
  - Asthenia [None]
  - Irritability [None]
  - Confusional state [None]

NARRATIVE: CASE EVENT DATE: 20200411
